FAERS Safety Report 6274558-4 (Version None)
Quarter: 2009Q3

REPORT INFORMATION
  Report Type: 
  Country: None (occurrence: None)
  Receive Date: 20090716
  Receipt Date: 20090702
  Transmission Date: 20100115
  Serious: Yes (Hospitalization)
  Sender: FDA-Public Use
  Company Number: 2009008478

PATIENT

DRUGS (1)
  1. TRISENOX [Suspect]
     Indication: NEUROBLASTOMA
     Dosage: INTRAVENOUS DRIP
     Route: 041

REACTIONS (3)
  - DEHYDRATION [None]
  - DIARRHOEA [None]
  - VOMITING [None]
